FAERS Safety Report 9670991 (Version 1)
Quarter: 2013Q4

REPORT INFORMATION
  Report Type: Spontaneous
  Country: US (occurrence: None)
  Receive Date: 20131105
  Receipt Date: 20131105
  Transmission Date: 20140711
  Serious: No
  Sender: FDA-Public Use
  Company Number: None

PATIENT
  Age: 60 Year
  Sex: Male
  Weight: 79.38 kg

DRUGS (1)
  1. AMLODOPINE/BENAZEPRIL [Suspect]
     Indication: HYPERTENSION
     Route: 048

REACTIONS (4)
  - Paraesthesia oral [None]
  - Lip swelling [None]
  - Hypersensitivity [None]
  - Swelling face [None]
